FAERS Safety Report 5895285-9 (Version None)
Quarter: 2008Q3

REPORT INFORMATION
  Report Type: 
  Country: None (occurrence: None)
  Receive Date: 20080923
  Receipt Date: 20080923
  Transmission Date: 20090109
  Serious: Yes (Hospitalization)
  Sender: FDA-Public Use
  Company Number: None

PATIENT
  Age: 50 Year
  Sex: Male
  Weight: 54.4316 kg

DRUGS (1)
  1. FLEET PHOSPHO-SODA FLEET LABORATORIES [Suspect]
     Indication: COLONOSCOPY
     Dosage: 1.5 FL. OZ -45 ML- ONCE PO 1.0 FL. OZ -30 ML- ONCE PO
     Route: 048
     Dates: start: 20080520, end: 20080521

REACTIONS (4)
  - ANURIA [None]
  - HYPERTENSION [None]
  - URINARY RETENTION [None]
  - URINE OUTPUT DECREASED [None]
